FAERS Safety Report 6639793-1 (Version None)
Quarter: 2010Q1

REPORT INFORMATION
  Report Type: 
  Country: None (occurrence: None)
  Receive Date: 20100315
  Receipt Date: 20100304
  Transmission Date: 20100710
  Serious: Yes (Other)
  Sender: FDA-Public Use
  Company Number: 229-20484-09121754

PATIENT
  Sex: Male
  Weight: 2.74 kg

DRUGS (3)
  1. INNOHEP [Suspect]
     Indication: DRUG EXPOSURE DURING PREGNANCY
     Dosage: TRANSCPLACENTAL
     Route: 064
     Dates: start: 20061102, end: 20070501
  2. DEXAMETHASONE TAB [Concomitant]
  3. KLACID LA (CLARITHYROMYCIN) [Concomitant]

REACTIONS (2)
  - DRUG EXPOSURE DURING PREGNANCY [None]
  - PREMATURE BABY [None]
